FAERS Safety Report 21943428 (Version 1)
Quarter: 2023Q1

REPORT INFORMATION
  Report Type: Report from Study
  Country: FR (occurrence: FR)
  Receive Date: 20230202
  Receipt Date: 20230202
  Transmission Date: 20230417
  Serious: Yes (Disabling)
  Sender: FDA-Public Use
  Company Number: FR-002147023-NVSC2023FR020418

PATIENT
  Age: 51 Year
  Sex: Male
  Weight: 69 kg

DRUGS (8)
  1. NELARABINE [Suspect]
     Active Substance: NELARABINE
     Indication: Acute lymphocytic leukaemia
     Dosage: 2900 MG
     Route: 042
     Dates: start: 20211216, end: 20220921
  2. METHOTREXATE [Suspect]
     Active Substance: METHOTREXATE
     Indication: Acute lymphocytic leukaemia
     Dosage: 15 MG
     Route: 037
     Dates: start: 20221004
  3. PREDNISONE [Concomitant]
     Active Substance: PREDNISONE
     Indication: Product used for unknown indication
     Dosage: 70 MG (ONE MONTH)
     Route: 048
  4. LANSOPRAZOLE [Concomitant]
     Active Substance: LANSOPRAZOLE
     Indication: Product used for unknown indication
     Dosage: 30 MG
     Route: 048
     Dates: start: 20211001
  5. VALACYCLOVIR HYDROCHLORIDE [Concomitant]
     Active Substance: VALACYCLOVIR HYDROCHLORIDE
     Indication: Prophylaxis
     Dosage: 1 G
     Route: 048
     Dates: start: 20211001
  6. BACTRIM [Concomitant]
     Active Substance: SULFAMETHOXAZOLE\TRIMETHOPRIM
     Indication: Prophylaxis
     Dosage: 1 G
     Route: 048
     Dates: start: 20211001
  7. PURINETHOL [Concomitant]
     Active Substance: MERCAPTOPURINE
     Indication: Product used for unknown indication
     Dosage: 60 MG
     Route: 048
     Dates: start: 20220103
  8. VINDESINE [Concomitant]
     Active Substance: VINDESINE
     Indication: Product used for unknown indication
     Dosage: 4 MG
     Route: 042
     Dates: start: 20220103

REACTIONS (1)
  - Spinal cord injury [Unknown]

NARRATIVE: CASE EVENT DATE: 20221105
